FAERS Safety Report 9224683 (Version 1)
Quarter: 2013Q2

REPORT INFORMATION
  Report Type: Spontaneous
  Country: US (occurrence: US)
  Receive Date: 20130411
  Receipt Date: 20130411
  Transmission Date: 20140414
  Serious: Yes (Other)
  Sender: FDA-Public Use
  Company Number: US-PFIZER INC-2013112180

PATIENT
  Age: 61 Year
  Sex: Male
  Weight: 83.9 kg

DRUGS (2)
  1. LIPITOR [Suspect]
     Indication: BLOOD CHOLESTEROL INCREASED
     Dosage: 20 MG, 1X/DAY
     Dates: start: 2009
  2. LIPITOR [Suspect]
     Dosage: 40 MG, UNK

REACTIONS (8)
  - Cardiac disorder [Unknown]
  - Arterial occlusive disease [Unknown]
  - Colitis [Unknown]
  - Depression [Unknown]
  - Gastric disorder [Unknown]
  - Dyspepsia [Unknown]
  - Stress [Unknown]
  - Weight increased [Unknown]
